FAERS Safety Report 10637507 (Version 2)
Quarter: 2015Q1

REPORT INFORMATION
  Report Type: Spontaneous
  Country: US (occurrence: US)
  Receive Date: 20141208
  Receipt Date: 20150202
  Transmission Date: 20150720
  Serious: Yes (Other)
  Sender: FDA-Public Use
  Company Number: US-GLAXOSMITHKLINE-US2014GSK029857

PATIENT
  Age: 53 Year
  Sex: Male

DRUGS (14)
  1. FLOVENT [Suspect]
     Active Substance: FLUTICASONE PROPIONATE
     Indication: ASTHMA
     Dosage: 250 UG, PRN
     Route: 055
     Dates: start: 201409
  2. CALCIUM [Concomitant]
     Active Substance: CALCIUM
  3. MORPHINE [Concomitant]
     Active Substance: MORPHINE
  4. SINGULAIR [Concomitant]
     Active Substance: MONTELUKAST SODIUM
  5. WARFARIN [Concomitant]
     Active Substance: WARFARIN
  6. ADVAIR HFA [Suspect]
     Active Substance: FLUTICASONE PROPIONATE\SALMETEROL XINAFOATE
     Indication: ASTHMA
     Dosage: UNK, QD
  7. DIAZEPAM. [Concomitant]
     Active Substance: DIAZEPAM
  8. ZANTAC [Concomitant]
     Active Substance: RANITIDINE HYDROCHLORIDE
  9. MEDICATION UNKNOWN [Concomitant]
     Active Substance: UNSPECIFIED INGREDIENT
  10. OXYCODONE [Concomitant]
     Active Substance: OXYCODONE
  11. METOPROLOL [Concomitant]
     Active Substance: METOPROLOL
  12. BLOOD THINNER [Concomitant]
     Active Substance: UNSPECIFIED INGREDIENT
  13. DEXILANT [Concomitant]
     Active Substance: DEXLANSOPRAZOLE
  14. NEBULIZER (NAME UNKNOWN) [Concomitant]

REACTIONS (6)
  - Procedural complication [Unknown]
  - Product quality issue [Unknown]
  - Paralysis [Unknown]
  - Thyroidectomy [Unknown]
  - Wheezing [Not Recovered/Not Resolved]
  - Drug administration error [Unknown]

NARRATIVE: CASE EVENT DATE: 201409
